FAERS Safety Report 8721910 (Version 9)
Quarter: 2017Q4

REPORT INFORMATION
  Report Type: Report from Study
  Country: CA (occurrence: CA)
  Receive Date: 20120814
  Receipt Date: 20171117
  Transmission Date: 20180321
  Serious: Yes (Hospitalization)
  Sender: FDA-Public Use
  Company Number: PHHY2011CA100040

PATIENT
  Age: 44 Year
  Sex: Female
  Weight: 65 kg

DRUGS (4)
  1. EXTAVIA [Suspect]
     Active Substance: INTERFERON BETA-1B
     Indication: SECONDARY PROGRESSIVE MULTIPLE SCLEROSIS
     Dosage: 4 MIU X 3 DOSES
     Route: 058
  2. EXTAVIA [Suspect]
     Active Substance: INTERFERON BETA-1B
     Dosage: 8 MIU, QOD
     Route: 058
     Dates: end: 20170912
  3. EXTAVIA [Suspect]
     Active Substance: INTERFERON BETA-1B
     Dosage: 6 MIU X 3 DOSES
     Route: 058
  4. EXTAVIA [Suspect]
     Active Substance: INTERFERON BETA-1B
     Indication: RELAPSING-REMITTING MULTIPLE SCLEROSIS
     Dosage: 2 MIU X 3 DOSES
     Route: 058
     Dates: start: 20110930

REACTIONS (17)
  - Gait disturbance [Unknown]
  - Balance disorder [Unknown]
  - Injection site pain [Unknown]
  - Fatigue [Unknown]
  - Dysuria [Recovering/Resolving]
  - Memory impairment [Unknown]
  - Spinal pain [Unknown]
  - Renal impairment [Recovering/Resolving]
  - Movement disorder [Unknown]
  - Limb discomfort [Unknown]
  - Hypoaesthesia [Unknown]
  - Back pain [Recovering/Resolving]
  - Multiple sclerosis relapse [Unknown]
  - Burning sensation [Unknown]
  - Injection site erythema [Recovered/Resolved]
  - Injection site bruising [Unknown]
  - Device occlusion [Unknown]

NARRATIVE: CASE EVENT DATE: 20120730
